FAERS Safety Report 21102889 (Version 3)
Quarter: 2022Q3

REPORT INFORMATION
  Report Type: Spontaneous
  Country: US (occurrence: None)
  Receive Date: 20220720
  Receipt Date: 20220825
  Transmission Date: 20221026
  Serious: Yes (Other)
  Sender: FDA-Public Use
  Company Number: US-ROCHE-3141570

PATIENT
  Age: 19 Year
  Sex: Female
  Weight: 65.376 kg

DRUGS (12)
  1. XOLAIR [Suspect]
     Active Substance: OMALIZUMAB
     Indication: Idiopathic urticaria
     Dosage: STRENGTH: 150MG/ML
     Route: 058
     Dates: start: 20211207
  2. XOLAIR [Suspect]
     Active Substance: OMALIZUMAB
  3. XOLAIR [Suspect]
     Active Substance: OMALIZUMAB
  4. XOLAIR [Suspect]
     Active Substance: OMALIZUMAB
     Dosage: STRENGTH: 150MG/ML?INJECT 2 SYRINGES UNDER THE SKIN EVERY 4 WEEKS.
     Route: 058
     Dates: start: 20220726
  5. XOLAIR [Suspect]
     Active Substance: OMALIZUMAB
  6. XOLAIR [Suspect]
     Active Substance: OMALIZUMAB
  7. PREDNISONE [Concomitant]
     Active Substance: PREDNISONE
     Dosage: 5 TABS TWICE A DAILY FOR 2 DAYS, 4 TABS TWICE A DAILY FOR 2 DAYS, 3 TABS TWICE A DAILY FOR 2 DAYS,?2
     Route: 048
     Dates: start: 20220805
  8. PREDNISONE [Concomitant]
     Active Substance: PREDNISONE
     Route: 048
     Dates: start: 20220729, end: 20220805
  9. XOPENEX HFA [Concomitant]
     Active Substance: LEVALBUTEROL TARTRATE
     Dosage: 2 PUFF 2 TIMES A DAY
     Dates: start: 20220805
  10. AZELASTINE HYDROCHLORIDE [Concomitant]
     Active Substance: AZELASTINE HYDROCHLORIDE
     Dosage: 2 SPRAYS 2 TIMES A DAT AS NEEDED.
     Route: 045
     Dates: start: 20220719
  11. FEXOFENADINE HCL [Concomitant]
     Active Substance: FEXOFENADINE HYDROCHLORIDE
     Route: 048
     Dates: start: 20220719
  12. EPIPEN [Concomitant]
     Active Substance: EPINEPHRINE
     Dosage: STRENGTH: 0.3MG/0.3ML?ONE INJECTION AS NEEDED
     Dates: start: 20220719

REACTIONS (5)
  - Anaphylactic reaction [Unknown]
  - Asthma [Unknown]
  - Dizziness [Unknown]
  - Muscular weakness [Unknown]
  - Middle insomnia [Unknown]

NARRATIVE: CASE EVENT DATE: 20220708
